FAERS Safety Report 4910348-X (Version None)
Quarter: 2006Q1

REPORT INFORMATION
  Report Type: 
  Country: None (occurrence: None)
  Receive Date: 20060209
  Receipt Date: 20060130
  Transmission Date: 20060701
  Serious: Yes (Disabling)
  Sender: FDA-Public Use
  Company Number: 2005-04483

PATIENT
  Age: 72 Year
  Sex: Male
  Weight: 84 kg

DRUGS (1)
  1. KENTERA (WATSON LABORATORIES)(OXYBUTYNIN) TRANSDERMAL PATCH, 3.9MG [Suspect]
     Indication: URGE INCONTINENCE
     Dosage: 1 PATCH, 2/WEEK, TRANSDERMAL
     Route: 062
     Dates: start: 20051014, end: 20051112

REACTIONS (4)
  - CONDITION AGGRAVATED [None]
  - DIPLEGIA [None]
  - MUSCULAR WEAKNESS [None]
  - NEUROPATHY PERIPHERAL [None]
